FAERS Safety Report 12744404 (Version 1)
Quarter: 2016Q3

REPORT INFORMATION
  Report Type: Spontaneous
  Country: US (occurrence: US)
  Receive Date: 20160914
  Receipt Date: 20160914
  Transmission Date: 20161109
  Serious: No
  Sender: FDA-Public Use
  Company Number: US-TEVA-684159USA

PATIENT
  Sex: Male

DRUGS (1)
  1. AZILECT [Suspect]
     Active Substance: RASAGILINE MESYLATE

REACTIONS (5)
  - Nausea [Unknown]
  - Fall [Unknown]
  - Headache [Unknown]
  - Asthenia [Unknown]
  - Insomnia [Unknown]
